FAERS Safety Report 22045111 (Version 1)
Quarter: 2023Q1

REPORT INFORMATION
  Report Type: Report from Study
  Country: US (occurrence: US)
  Receive Date: 20230228
  Receipt Date: 20230228
  Transmission Date: 20230418
  Serious: Yes (Other)
  Sender: FDA-Public Use
  Company Number: US-UCBSA-2022062003

PATIENT
  Age: 74 Year
  Sex: Female

DRUGS (1)
  1. ROTIGOTINE [Suspect]
     Active Substance: ROTIGOTINE
     Indication: Restless legs syndrome
     Dosage: 3 MILLIGRAM, 1 PATCH ONCE DAILY (QD)
     Route: 062

REACTIONS (2)
  - Hip arthroplasty [Unknown]
  - Application site nodule [Not Recovered/Not Resolved]

NARRATIVE: CASE EVENT DATE: 20220912
